FAERS Safety Report 14574394 (Version 3)
Quarter: 2018Q1

REPORT INFORMATION
  Report Type: Report from Study
  Country: None (occurrence: ES)
  Receive Date: 20180226
  Receipt Date: 20180309
  Transmission Date: 20180509
  Serious: Yes (Hospitalization, Other)
  Sender: FDA-Public Use
  Company Number: ES-ABBVIE-18K-144-2269985-00

PATIENT
  Age: 78 Year
  Sex: Male

DRUGS (7)
  1. DEPRAX (TRAZADONE HYDROCHLORIDE) [Concomitant]
     Active Substance: TRAZODONE HYDROCHLORIDE
     Indication: PRODUCT USED FOR UNKNOWN INDICATION
  2. DUODOPA [Suspect]
     Active Substance: CARBIDOPA\LEVODOPA
     Dosage: DOSE DECREASED TO HALF.
     Route: 050
  3. DUODOPA [Suspect]
     Active Substance: CARBIDOPA\LEVODOPA
     Indication: PARKINSON^S DISEASE
     Dosage: CONTINUOUS DOSE: 2.2 ML/H
     Route: 050
     Dates: start: 20111219
  4. DUODOPA [Suspect]
     Active Substance: CARBIDOPA\LEVODOPA
     Dosage: CONTINUOUS DOSE 5.3 ML/HOUR; EXTRA DOSE: 5.5; MORNING DOSE 15 ML
     Route: 050
  5. DUODOPA [Suspect]
     Active Substance: CARBIDOPA\LEVODOPA
     Dosage: CONTINUOUS DOSE 2.4ML/H
     Route: 050
  6. DISTRANEURINE [Concomitant]
     Active Substance: CLOMETHIAZOLE
     Indication: PRODUCT USED FOR UNKNOWN INDICATION
  7. STILNOX [Concomitant]
     Active Substance: ZOLPIDEM TARTRATE
     Indication: PRODUCT USED FOR UNKNOWN INDICATION
     Dosage: HALF TABLET 6 TIMES DAILY + 1 TABLET AT NIGHT

REACTIONS (7)
  - Pneumonia [Recovering/Resolving]
  - Lung consolidation [Unknown]
  - Respiratory tract infection [Recovered/Resolved]
  - Tachypnoea [Not Recovered/Not Resolved]
  - Urine output decreased [Unknown]
  - Sputum retention [Unknown]
  - Restlessness [Not Recovered/Not Resolved]

NARRATIVE: CASE EVENT DATE: 201802
